FAERS Safety Report 19578500 (Version 2)
Quarter: 2021Q3

REPORT INFORMATION
  Report Type: Spontaneous
  Country: US (occurrence: US)
  Receive Date: 20210720
  Receipt Date: 20210903
  Transmission Date: 20211014
  Serious: Yes (Death, Life-Threatening, Hospitalization, Other)
  Sender: FDA-Public Use
  Company Number: US-B.I. PHARMACEUTICALS,INC./RIDGEFIELD-2021-BI-115919

PATIENT
  Age: 64 Year
  Sex: Male
  Weight: 64 kg

DRUGS (15)
  1. FRESH FROZEN PLASMA [Concomitant]
     Active Substance: HUMAN PLASMA
     Indication: PRODUCT USED FOR UNKNOWN INDICATION
     Dates: start: 20200329, end: 20200330
  2. FEBUXOSTAT. [Concomitant]
     Active Substance: FEBUXOSTAT
     Indication: PRODUCT USED FOR UNKNOWN INDICATION
     Dates: start: 20191009
  3. PLACEBO [Concomitant]
     Active Substance: UNSPECIFIED INGREDIENT
     Indication: PRODUCT USED FOR UNKNOWN INDICATION
     Dosage: BLINDED BID
     Route: 048
     Dates: start: 20200117, end: 20200320
  4. ASA [Concomitant]
     Active Substance: ASPIRIN
     Indication: ATRIAL FIBRILLATION
     Dates: start: 20190918
  5. SOTALOL. [Concomitant]
     Active Substance: SOTALOL
     Indication: CARDIAC FAILURE CONGESTIVE
     Dates: start: 20191009
  6. EZETIMIBE. [Concomitant]
     Active Substance: EZETIMIBE
     Indication: PRODUCT USED FOR UNKNOWN INDICATION
     Dates: start: 20191009
  7. VITAMIN K [Concomitant]
     Active Substance: PHYTONADIONE
     Indication: PRODUCT USED FOR UNKNOWN INDICATION
     Dates: start: 20200322
  8. ATORVASTATIN [Concomitant]
     Active Substance: ATORVASTATIN
     Indication: DYSLIPIDAEMIA
     Dates: start: 20191009
  9. CALCIFEDIOL [Concomitant]
     Active Substance: CALCIFEDIOL
     Indication: OSTEOPOROSIS PROPHYLAXIS
     Dates: start: 20191009
  10. HEPARIN [Concomitant]
     Active Substance: HEPARIN SODIUM
     Indication: PRODUCT USED FOR UNKNOWN INDICATION
     Dates: start: 20200409
  11. ESOMEPRAZOLE. [Concomitant]
     Active Substance: ESOMEPRAZOLE MAGNESIUM
     Indication: PROPHYLAXIS AGAINST GASTROINTESTINAL ULCER
     Dates: start: 20200306
  12. FUROSEMIDE. [Concomitant]
     Active Substance: FUROSEMIDE
     Indication: CARDIAC FAILURE CONGESTIVE
     Dates: start: 20191009
  13. SACUBITRIL;VALSARTAN [Concomitant]
     Active Substance: SACUBITRIL\VALSARTAN
     Indication: CARDIAC FAILURE CONGESTIVE
     Dates: start: 20191009
  14. PRADAXA [Suspect]
     Active Substance: DABIGATRAN ETEXILATE MESYLATE
     Indication: ATRIAL FIBRILLATION
     Dosage: 110MG BID
     Route: 065
     Dates: start: 20180906, end: 20200320
  15. SACUBITRIL;VALSARTAN [Concomitant]
     Active Substance: SACUBITRIL\VALSARTAN
     Indication: CARDIAC FAILURE CONGESTIVE
     Dates: start: 20191009

REACTIONS (18)
  - Haemorrhoids [Unknown]
  - Urinary tract infection [Unknown]
  - Pallor [Unknown]
  - Death [Fatal]
  - Coagulopathy [Recovered/Resolved]
  - Cerebral dysgenesis [Unknown]
  - Haematuria [Unknown]
  - Proctitis [Recovered/Resolved]
  - Intestinal polyp [Unknown]
  - Gastrointestinal haemorrhage [Recovered/Resolved]
  - Cerebral small vessel ischaemic disease [Unknown]
  - Hypotension [Unknown]
  - Melaena [Unknown]
  - Asthenia [Unknown]
  - Jaundice [Unknown]
  - Renal tubular necrosis [Recovered/Resolved]
  - Biliary obstruction [Recovered/Resolved]
  - Vomiting [Unknown]

NARRATIVE: CASE EVENT DATE: 20190330
